FAERS Safety Report 13018966 (Version 1)
Quarter: 2016Q4

REPORT INFORMATION
  Report Type: Spontaneous
  Country: HR (occurrence: HR)
  Receive Date: 20161212
  Receipt Date: 20161212
  Transmission Date: 20170207
  Serious: Yes (Life-Threatening, Hospitalization, Other)
  Sender: FDA-Public Use
  Company Number: HR-PFIZER INC-2016571609

PATIENT
  Sex: Male

DRUGS (2)
  1. ZOLOFT [Suspect]
     Active Substance: SERTRALINE HYDROCHLORIDE
     Dosage: 1400 MG (ONE BOX: 28X50 MG); SINGLE
     Route: 048
     Dates: start: 20160918
  2. APAURIN [Suspect]
     Active Substance: DIAZEPAM
     Dosage: 150 MG (HALF BOX: 15X10 MG); SINGLE
     Route: 048
     Dates: start: 20160918

REACTIONS (3)
  - Intentional overdose [Unknown]
  - Somnolence [Unknown]
  - Suicide attempt [Unknown]

NARRATIVE: CASE EVENT DATE: 20160918
